FAERS Safety Report 13363186 (Version 1)
Quarter: 2017Q1

REPORT INFORMATION
  Report Type: Spontaneous
  Country: FR (occurrence: FR)
  Receive Date: 20170323
  Receipt Date: 20170323
  Transmission Date: 20170429
  Serious: Yes (Other)
  Sender: FDA-Public Use
  Company Number: FR-SA-2017SA044576

PATIENT
  Age: 36 Year
  Sex: Male

DRUGS (19)
  1. METRONIDAZOLE. [Suspect]
     Active Substance: METRONIDAZOLE
     Indication: INFECTION PROPHYLAXIS
     Route: 042
     Dates: start: 20170211
  2. ENDOXAN [Concomitant]
     Active Substance: CYCLOPHOSPHAMIDE
     Dates: start: 20160919
  3. ARACYTINE [Concomitant]
     Active Substance: CYTARABINE
     Dates: start: 20161116
  4. METHOTREXATE. [Concomitant]
     Active Substance: METHOTREXATE
     Dates: start: 20160905
  5. ENDOXAN [Concomitant]
     Active Substance: CYCLOPHOSPHAMIDE
     Dates: start: 20161102
  6. THYMOGLOBULINE [Suspect]
     Active Substance: LAPINE T-LYMPHOCYTE IMMUNE GLOBULIN
     Indication: BONE MARROW TRANSPLANT
     Route: 042
     Dates: start: 20170213, end: 20170214
  7. DEFITELIO [Suspect]
     Active Substance: DEFIBROTIDE SODIUM
     Indication: THROMBOSIS
     Route: 042
     Dates: start: 20170213
  8. INEXIUM [Concomitant]
     Active Substance: ESOMEPRAZOLE
  9. ARACYTINE [Concomitant]
     Active Substance: CYTARABINE
     Dates: start: 20161003
  10. FORTUM [Suspect]
     Active Substance: CEFTAZIDIME
     Indication: INFECTION PROPHYLAXIS
     Route: 042
     Dates: start: 20170213, end: 20170228
  11. TIORFAN [Concomitant]
     Active Substance: RACECADOTRIL
     Dosage: 1 CAPSULE IN THE MORNING, AT NOON AND IN THE EVENING
  12. SMECTA [Concomitant]
     Active Substance: MONTMORILLONITE
     Dosage: 1 SACHET IN THE MORNING AT NOON AND IN THE EVENING
  13. ALPRAZOLAM. [Concomitant]
     Active Substance: ALPRAZOLAM
     Dosage: 0.25 1 TABLET IF REQUIRED
     Route: 048
  14. CRESEMBA [Suspect]
     Active Substance: ISAVUCONAZONIUM SULFATE
     Indication: INFECTION PROPHYLAXIS
     Dosage: ROUTE : BUC
     Dates: start: 20170206
  15. TOPALGIC [Concomitant]
     Active Substance: TRAMADOL
     Dosage: 100 INTRAVENOUS IF NEEDED
     Route: 042
  16. POLARAMINE [Concomitant]
     Active Substance: DEXCHLORPHENIRAMINE MALEATE
     Dosage: AMPOULE AT 22 HOURS.
  17. ARACYTINE [Concomitant]
     Active Substance: CYTARABINE
     Dates: start: 20160808
  18. TIENAM [Suspect]
     Active Substance: CILASTATIN SODIUM\IMIPENEM
     Indication: INFECTION PROPHYLAXIS
     Route: 042
     Dates: start: 20170211, end: 20170218
  19. METHOTREXATE. [Concomitant]
     Active Substance: METHOTREXATE
     Dates: start: 20161018

REACTIONS (4)
  - Anaphylactic shock [Recovered/Resolved]
  - Tachycardia [Recovered/Resolved]
  - Tachypnoea [Recovered/Resolved]
  - Hyperthermia [Recovered/Resolved]

NARRATIVE: CASE EVENT DATE: 20170213
